FAERS Safety Report 11170461 (Version 15)
Quarter: 2017Q4

REPORT INFORMATION
  Report Type: Report from Study
  Country: CA (occurrence: CA)
  Receive Date: 20150608
  Receipt Date: 20171127
  Transmission Date: 20180320
  Serious: Yes (Other)
  Sender: FDA-Public Use
  Company Number: CA-ROCHE-1588365

PATIENT
  Age: 68 Year
  Sex: Female

DRUGS (24)
  1. DIPHENHYDRAMINE. [Concomitant]
     Active Substance: DIPHENHYDRAMINE
     Route: 048
     Dates: start: 20171121
  2. PREDNISONE. [Concomitant]
     Active Substance: PREDNISONE
  3. SYNTHROID [Concomitant]
     Active Substance: LEVOTHYROXINE SODIUM
  4. RITUXAN [Suspect]
     Active Substance: RITUXIMAB
     Indication: POLYARTHRITIS
     Dosage: LAST INFUSION OF RITUXAN WAS GIVEN ON 13/OCT/2015.
     Route: 042
     Dates: start: 20141111
  5. RITUXAN [Suspect]
     Active Substance: RITUXIMAB
     Indication: POLYMYOSITIS
     Route: 042
     Dates: start: 20171121
  6. METHYLPREDNISOLONE. [Concomitant]
     Active Substance: METHYLPREDNISOLONE
     Route: 042
     Dates: start: 20171121
  7. CALCITE [Concomitant]
     Active Substance: CALCIUM CARBONATE
  8. FLECAINIDE [Concomitant]
     Active Substance: FLECAINIDE
  9. LASIX [Concomitant]
     Active Substance: FUROSEMIDE
  10. DIPHENHYDRAMINE. [Concomitant]
     Active Substance: DIPHENHYDRAMINE
     Indication: PREMEDICATION
     Route: 048
     Dates: start: 20141111
  11. VOLTAREN [Concomitant]
     Active Substance: DICLOFENAC SODIUM
  12. AZATHIOPRINE. [Concomitant]
     Active Substance: AZATHIOPRINE
  13. CYCLOBENZAPRINE. [Concomitant]
     Active Substance: CYCLOBENZAPRINE
  14. ACETAMINOPHEN. [Concomitant]
     Active Substance: ACETAMINOPHEN
     Indication: PREMEDICATION
     Route: 048
     Dates: start: 20141111
  15. RISEDRONATE [Concomitant]
     Active Substance: RISEDRONATE SODIUM
  16. PANTOPRAZOLE [Concomitant]
     Active Substance: PANTOPRAZOLE
  17. TYLENOL [Concomitant]
     Active Substance: ACETAMINOPHEN
     Route: 065
  18. ACETAMINOPHEN. [Concomitant]
     Active Substance: ACETAMINOPHEN
     Route: 048
     Dates: start: 20171121
  19. METHYLPREDNISOLONE. [Concomitant]
     Active Substance: METHYLPREDNISOLONE
     Indication: PREMEDICATION
     Route: 042
     Dates: start: 20141111
  20. ACETYLSALICYLIC ACID [Concomitant]
     Active Substance: ASPIRIN
  21. DILTIAZEM SR [Concomitant]
     Active Substance: DILTIAZEM HYDROCHLORIDE
     Dosage: 24 HR SUSTAINED RELEASE
     Route: 065
  22. WINPRED [Concomitant]
     Active Substance: PREDNISONE
  23. RAMIPRIL. [Concomitant]
     Active Substance: RAMIPRIL
  24. TYLENOL [Concomitant]
     Active Substance: ACETAMINOPHEN
     Route: 065

REACTIONS (33)
  - Psoriasis [Not Recovered/Not Resolved]
  - Blood pressure increased [Unknown]
  - Myalgia [Not Recovered/Not Resolved]
  - Exercise tolerance decreased [Not Recovered/Not Resolved]
  - Heart rate decreased [Unknown]
  - Headache [Not Recovered/Not Resolved]
  - Infusion related reaction [Unknown]
  - Dyspnoea [Recovered/Resolved]
  - Headache [Recovered/Resolved]
  - General physical health deterioration [Not Recovered/Not Resolved]
  - Respiratory rate decreased [Unknown]
  - Fatigue [Unknown]
  - Abdominal discomfort [Not Recovered/Not Resolved]
  - Oedema peripheral [Not Recovered/Not Resolved]
  - Diarrhoea [Recovered/Resolved]
  - Cough [Recovered/Resolved]
  - Erythema [Not Recovered/Not Resolved]
  - Blood pressure diastolic abnormal [Unknown]
  - Lymphadenopathy [Unknown]
  - Drug ineffective [Unknown]
  - Blood pressure fluctuation [Unknown]
  - Limb injury [Recovered/Resolved]
  - Arthralgia [Not Recovered/Not Resolved]
  - Nasopharyngitis [Unknown]
  - Throat irritation [Recovered/Resolved]
  - Pain [Unknown]
  - Gait disturbance [Not Recovered/Not Resolved]
  - Heart rate decreased [Unknown]
  - Blood pressure systolic increased [Unknown]
  - Hot flush [Recovered/Resolved]
  - Fatigue [Not Recovered/Not Resolved]
  - Joint swelling [Not Recovered/Not Resolved]
  - Arthralgia [Unknown]

NARRATIVE: CASE EVENT DATE: 201504
